FAERS Safety Report 8460724-6 (Version None)
Quarter: 2012Q2

REPORT INFORMATION
  Report Type: 
  Country: None (occurrence: None)
  Receive Date: 20120622
  Receipt Date: 20120619
  Transmission Date: 20120825
  Serious: Yes (Hospitalization)
  Sender: FDA-Public Use
  Company Number: US-ABBOTT-12P-163-0947751-00

PATIENT
  Sex: Male
  Weight: 78.088 kg

DRUGS (11)
  1. ASPIRIN [Concomitant]
     Indication: COAGULOPATHY
     Dosage: FORM STRENGTH: 81 MILLIGRAMS
  2. OMEGA FISH OIL [Concomitant]
     Indication: BLOOD CHOLESTEROL INCREASED
  3. PREVACID [Concomitant]
     Indication: GASTROOESOPHAGEAL REFLUX DISEASE
  4. FOLIC ACID [Concomitant]
     Indication: PRODUCT USED FOR UNKNOWN INDICATION
  5. CRESTOR [Concomitant]
     Indication: BLOOD CHOLESTEROL INCREASED
  6. AZOR [Concomitant]
     Indication: HYPERTENSION
     Dosage: 40-5 MG
  7. TRICOR [Concomitant]
     Indication: BLOOD TRIGLYCERIDES INCREASED
  8. ANDROGEL [Suspect]
     Indication: BLOOD TESTOSTERONE DECREASED
     Dosage: ONE PACKET
     Dates: end: 20120101
  9. FLOMAX [Concomitant]
     Indication: PROSTATOMEGALY
  10. ANDROGEL [Suspect]
     Dosage: ONE PACKET
     Dates: start: 20120618
  11. MULTI-VITAMIN [Concomitant]
     Indication: VITAMIN SUPPLEMENTATION

REACTIONS (8)
  - OESOPHAGITIS [None]
  - GASTROINTESTINAL DISORDER [None]
  - ABDOMINAL PAIN [None]
  - INTESTINAL OBSTRUCTION [None]
  - INCORRECT ROUTE OF DRUG ADMINISTRATION [None]
  - GLUCOSE TOLERANCE IMPAIRED [None]
  - BLOOD IRON DECREASED [None]
  - BLOOD TESTOSTERONE DECREASED [None]
